FAERS Safety Report 17079863 (Version 1)
Quarter: 2019Q4

REPORT INFORMATION
  Report Type: Spontaneous
  Country: US (occurrence: US)
  Receive Date: 20191029
  Receipt Date: 20191029
  Transmission Date: 20200122
  Serious: Yes (Other)
  Sender: FDA-Public Use
  Company Number: None

PATIENT
  Age: 46 Year
  Sex: Female
  Weight: 108 kg

DRUGS (11)
  1. CEFEPIME [Suspect]
     Active Substance: CEFEPIME HYDROCHLORIDE
     Indication: NECROTISING FASCIITIS
     Dosage: ?          OTHER FREQUENCY:2 X A WEEK;?
     Route: 042
  2. MINOXIDIL. [Concomitant]
     Active Substance: MINOXIDIL
  3. RENVELA [Concomitant]
     Active Substance: SEVELAMER CARBONATE
  4. ZOFRAN [Concomitant]
     Active Substance: ONDANSETRON HYDROCHLORIDE
  5. CEFEPIME [Suspect]
     Active Substance: CEFEPIME HYDROCHLORIDE
     Dosage: ?          OTHER FREQUENCY:1 X A WEEK;?
     Route: 042
  6. HYDROMORPHONE [Concomitant]
     Active Substance: HYDROMORPHONE
  7. HEPARIN [Concomitant]
     Active Substance: HEPARIN SODIUM
  8. AMLODIPINE [Concomitant]
     Active Substance: AMLODIPINE BESYLATE
  9. INSULIN [Concomitant]
     Active Substance: INSULIN NOS
  10. LIPITOR [Concomitant]
     Active Substance: ATORVASTATIN CALCIUM
  11. PEPCID [Concomitant]
     Active Substance: FAMOTIDINE

REACTIONS (3)
  - Mental status changes [None]
  - Unresponsive to stimuli [None]
  - Haemodialysis [None]

NARRATIVE: CASE EVENT DATE: 20191009
